FAERS Safety Report 26211217 (Version 1)
Quarter: 2025Q4

REPORT INFORMATION
  Report Type: Spontaneous
  Country: US (occurrence: US)
  Receive Date: 20251230
  Receipt Date: 20251230
  Transmission Date: 20260117
  Serious: Yes (Life-Threatening, Hospitalization)
  Sender: BAUSCH AND LOMB
  Company Number: US-BAUSCH-BH-2025-022958

PATIENT
  Age: 75 Year
  Sex: Female

DRUGS (7)
  1. NIFEDIPINE [Suspect]
     Active Substance: NIFEDIPINE
     Indication: Hypertension
     Route: 065
  2. CARVEDILOL [Suspect]
     Active Substance: CARVEDILOL
     Indication: Hypertension
     Route: 065
  3. CLONIDINE [Suspect]
     Active Substance: CLONIDINE
     Indication: Hypertension
     Route: 065
  4. ASPIRIN [Concomitant]
     Active Substance: ASPIRIN
     Indication: Product used for unknown indication
  5. HEPARIN [Concomitant]
     Active Substance: HEPARIN SODIUM
     Indication: Product used for unknown indication
  6. NITROGLYCERIN [Concomitant]
     Active Substance: NITROGLYCERIN
     Indication: Product used for unknown indication
  7. FUROSEMIDE [Concomitant]
     Active Substance: FUROSEMIDE
     Indication: Product used for unknown indication

REACTIONS (2)
  - BRASH syndrome [Recovered/Resolved]
  - Areflexia [Recovered/Resolved]
